FAERS Safety Report 10257536 (Version 1)
Quarter: 2014Q2

REPORT INFORMATION
  Report Type: Spontaneous
  Country: US (occurrence: US)
  Receive Date: 20140625
  Receipt Date: 20140625
  Transmission Date: 20141212
  Serious: No
  Sender: FDA-Public Use
  Company Number: US-GLAXOSMITHKLINE-A1067865A

PATIENT
  Age: 71 Year
  Sex: Male

DRUGS (5)
  1. VERAMYST [Suspect]
     Indication: MULTIPLE ALLERGIES
     Dosage: 2SPR PER DAY
     Route: 045
     Dates: start: 2011, end: 20140402
  2. BLOOD PRESSURE MEDICATION [Concomitant]
  3. UNKNOWN MEDICATION [Concomitant]
     Indication: BLOOD CHOLESTEROL
  4. VITAMIN [Concomitant]
  5. BABY ASPIRIN [Concomitant]

REACTIONS (2)
  - Intraocular pressure increased [Not Recovered/Not Resolved]
  - Ocular hyperaemia [Unknown]
